FAERS Safety Report 10791537 (Version 1)
Quarter: 2015Q1

REPORT INFORMATION
  Report Type: Spontaneous
  Country: CA (occurrence: CA)
  Receive Date: 20150213
  Receipt Date: 20150213
  Transmission Date: 20150721
  Serious: Yes (Other)
  Sender: FDA-Public Use
  Company Number: CA-GLAXOSMITHKLINE-CA2015GSK015643

PATIENT
  Sex: Male

DRUGS (2)
  1. DABRAFENIB [Suspect]
     Active Substance: DABRAFENIB
     Indication: PRODUCT USED FOR UNKNOWN INDICATION
  2. MEKINIST [Suspect]
     Active Substance: TRAMETINIB DIMETHYL SULFOXIDE
     Indication: METASTATIC MALIGNANT MELANOMA
     Dosage: 2 MG, QD

REACTIONS (9)
  - Metastases to lung [Unknown]
  - Metastases to central nervous system [Unknown]
  - Lung disorder [Unknown]
  - Dizziness [Unknown]
  - Dermatitis acneiform [Unknown]
  - Fatigue [Unknown]
  - Pneumonitis [Unknown]
  - Rash [Unknown]
  - Metastases to liver [Unknown]
